FAERS Safety Report 6380641-5 (Version None)
Quarter: 2009Q3

REPORT INFORMATION
  Report Type: 
  Country: None (occurrence: None)
  Receive Date: 20090929
  Receipt Date: 20090921
  Transmission Date: 20100115
  Serious: Yes (Other)
  Sender: FDA-Public Use
  Company Number: BR-JNJCH-2009025526

PATIENT
  Age: 65 Year
  Sex: Male
  Weight: 79 kg

DRUGS (2)
  1. NICORETTE [Suspect]
     Indication: SMOKING CESSATION THERAPY
     Route: 062
  2. INSULIN [Concomitant]
     Indication: DIABETES MELLITUS
     Dosage: TEXT:UNSPECIFED
     Route: 065

REACTIONS (3)
  - CONDITION AGGRAVATED [None]
  - DIABETES MELLITUS [None]
  - PALPITATIONS [None]
